FAERS Safety Report 11411711 (Version 2)
Quarter: 2015Q3

REPORT INFORMATION
  Report Type: Spontaneous
  Country: US (occurrence: US)
  Receive Date: 20150821
  Receipt Date: 20150903
  Transmission Date: 20151125
  Serious: No
  Sender: FDA-Public Use
  Company Number: US-ELI_LILLY_AND_COMPANY-US201111005080

PATIENT
  Sex: Female

DRUGS (6)
  1. HUMALOG [Suspect]
     Active Substance: INSULIN LISPRO
     Dosage: 30 U, BID
     Dates: start: 1999
  2. HUMULIN N [Suspect]
     Active Substance: INSULIN HUMAN
     Dosage: 5.5 U, EACH EVENING
     Dates: start: 1999
  3. HUMULIN N [Suspect]
     Active Substance: INSULIN HUMAN
     Indication: TYPE 2 DIABETES MELLITUS
     Dosage: 7 U, EACH MORNING
     Dates: start: 1999
  4. HUMULIN N [Suspect]
     Active Substance: INSULIN HUMAN
     Dosage: 7 U, EACH MORNING
     Dates: start: 1999
  5. HUMALOG [Suspect]
     Active Substance: INSULIN LISPRO
     Indication: TYPE 2 DIABETES MELLITUS
     Dosage: 30 U, BID
     Dates: start: 1999
  6. HUMULIN N [Suspect]
     Active Substance: INSULIN HUMAN
     Dosage: 5.5 U, EACH EVENING
     Dates: start: 1999

REACTIONS (1)
  - Cataract [Unknown]
